FAERS Safety Report 7770212-8 (Version None)
Quarter: 2011Q3

REPORT INFORMATION
  Report Type: 
  Country: None (occurrence: None)
  Receive Date: 20110922
  Receipt Date: 20100913
  Transmission Date: 20111222
  Serious: Yes (Other)
  Sender: FDA-Public Use
  Company Number: US-ASTRAZENECA-2010SE43221

PATIENT
  Age: 245 Month
  Sex: Female

DRUGS (1)
  1. SEROQUEL [Suspect]
     Route: 048
     Dates: end: 20100901

REACTIONS (7)
  - OBSESSIVE-COMPULSIVE PERSONALITY DISORDER [None]
  - DRUG DOSE OMISSION [None]
  - MOOD SWINGS [None]
  - SUICIDAL IDEATION [None]
  - MYALGIA [None]
  - WITHDRAWAL SYNDROME [None]
  - MUSCLE SPASMS [None]
